FAERS Safety Report 11928049 (Version 2)
Quarter: 2016Q1

REPORT INFORMATION
  Report Type: Spontaneous
  Country: SE (occurrence: SE)
  Receive Date: 20160119
  Receipt Date: 20160202
  Transmission Date: 20160526
  Serious: Yes (Other)
  Sender: FDA-Public Use
  Company Number: SE-UNICHEM LABORATORIES LIMITED-UCM201601-000005

PATIENT
  Age: 22 Year
  Sex: Male
  Weight: 72 kg

DRUGS (1)
  1. BISOPROLOL FUMARATE. [Suspect]
     Active Substance: BISOPROLOL FUMARATE
     Indication: LONG QT SYNDROME CONGENITAL

REACTIONS (2)
  - Ventricular arrhythmia [Recovered/Resolved]
  - Product use issue [Unknown]
